FAERS Safety Report 18161343 (Version 2)
Quarter: 2020Q3

REPORT INFORMATION
  Report Type: Report from Study
  Country: BR (occurrence: BR)
  Receive Date: 20200818
  Receipt Date: 20200930
  Transmission Date: 20201103
  Serious: Yes (Disabling)
  Sender: FDA-Public Use
  Company Number: NVSC2020BR226452

PATIENT
  Age: 58 Year
  Sex: Female

DRUGS (1)
  1. DIOVAN AMLO FIX [Suspect]
     Active Substance: AMLODIPINE\VALSARTAN
     Indication: BLOOD PRESSURE ABNORMAL
     Dosage: UNK
     Route: 065
     Dates: start: 2008

REACTIONS (6)
  - Feeling abnormal [Unknown]
  - Product packaging quantity issue [Unknown]
  - Joint stiffness [Not Recovered/Not Resolved]
  - Dysgraphia [Unknown]
  - Accident [Unknown]
  - Anger [Unknown]

NARRATIVE: CASE EVENT DATE: 20200810
